FAERS Safety Report 9484282 (Version 2)
Quarter: 2013Q3

REPORT INFORMATION
  Report Type: Spontaneous
  Country: CA (occurrence: CA)
  Receive Date: 20130828
  Receipt Date: 20130828
  Transmission Date: 20140515
  Serious: Yes (Other)
  Sender: FDA-Public Use
  Company Number: CA-AMGEN-KDL374002

PATIENT
  Age: 36 Year
  Sex: Male
  Weight: 74.9 kg

DRUGS (2)
  1. ENBREL [Suspect]
     Indication: PSORIASIS
     Dosage: UNK UNK, 2 TIMES/WK
     Route: 065
     Dates: start: 20090609
  2. FINASTERIDE [Concomitant]
     Dosage: UNK UNK, QWK
     Route: 048
     Dates: start: 200907

REACTIONS (3)
  - Hypoaesthesia [Not Recovered/Not Resolved]
  - Joint stiffness [Unknown]
  - Drug ineffective [Unknown]
